FAERS Safety Report 9456340 (Version 1)
Quarter: 2013Q3

REPORT INFORMATION
  Report Type: Spontaneous
  Country: FR (occurrence: FR)
  Receive Date: 20130813
  Receipt Date: 20130813
  Transmission Date: 20140515
  Serious: Yes (Death, Hospitalization)
  Sender: FDA-Public Use
  Company Number: FR-GLAXOSMITHKLINE-B0913616A

PATIENT
  Age: 84 Year
  Sex: Male

DRUGS (9)
  1. DEROXAT [Suspect]
     Indication: PRODUCT USED FOR UNKNOWN INDICATION
     Dosage: .5UNIT AT NIGHT
     Route: 048
     Dates: end: 20130612
  2. RISPERDAL [Suspect]
     Indication: PRODUCT USED FOR UNKNOWN INDICATION
     Dosage: .5MG AT NIGHT
     Route: 048
     Dates: start: 20130607, end: 20130611
  3. GLUCOPHAGE [Concomitant]
     Route: 048
  4. JANUVIA [Concomitant]
     Dosage: 100MG UNKNOWN
     Route: 048
  5. KARDEGIC [Concomitant]
     Dosage: 160MG UNKNOWN
     Route: 048
  6. LIPANTHYL 200 M [Concomitant]
     Route: 048
  7. TAMSULOSINE [Concomitant]
     Dosage: .4MG UNKNOWN
     Route: 048
  8. OMEPRAZOLE [Concomitant]
     Route: 065
  9. TIAPRIDAL [Concomitant]
     Dosage: 50MG PER DAY
     Route: 065
     Dates: end: 201306

REACTIONS (8)
  - Somnolence [Fatal]
  - Agitation [Fatal]
  - Coma [Fatal]
  - Bronchopneumonia [Fatal]
  - Respiratory disorder [Not Recovered/Not Resolved]
  - Respiratory tract congestion [Not Recovered/Not Resolved]
  - Dysphagia [Not Recovered/Not Resolved]
  - Frontotemporal dementia [Not Recovered/Not Resolved]
